FAERS Safety Report 17886095 (Version 2)
Quarter: 2021Q2

REPORT INFORMATION
  Report Type: Report from Study
  Country: CA (occurrence: CA)
  Receive Date: 20200611
  Receipt Date: 20210414
  Transmission Date: 20210717
  Serious: Yes (Other)
  Sender: FDA-Public Use
  Company Number: NVSC2019CA060111

PATIENT
  Age: 48 Year
  Sex: Female

DRUGS (5)
  1. IBUPROFEN. [Concomitant]
     Active Substance: IBUPROFEN
     Indication: PRODUCT USED FOR UNKNOWN INDICATION
     Dosage: UNK MG
     Route: 048
     Dates: start: 2003
  2. FOLIC ACID. [Concomitant]
     Active Substance: FOLIC ACID
     Indication: PRODUCT USED FOR UNKNOWN INDICATION
     Dosage: 5 MG
     Route: 048
  3. METHOTREXATE. [Concomitant]
     Active Substance: METHOTREXATE
     Indication: PRODUCT USED FOR UNKNOWN INDICATION
     Dosage: UNK, QW
     Route: 065
     Dates: start: 201907
  4. ERELZI [Suspect]
     Active Substance: ETANERCEPT-SZZS
     Indication: RHEUMATOID ARTHRITIS
     Dosage: 50 MG, QW
     Route: 058
     Dates: start: 20191106
  5. TYLENOL [Concomitant]
     Active Substance: ACETAMINOPHEN
     Indication: PRODUCT USED FOR UNKNOWN INDICATION
     Dosage: UNK
     Route: 065
     Dates: start: 2003

REACTIONS (17)
  - Hyperthyroidism [Unknown]
  - White blood cell count increased [Unknown]
  - Pancreatic abscess [Unknown]
  - Mobility decreased [Unknown]
  - Abdominal adhesions [Unknown]
  - Splenic haemorrhage [Unknown]
  - Asthenia [Unknown]
  - Infection [Recovered/Resolved]
  - Pancreatitis chronic [Unknown]
  - Hypotension [Unknown]
  - Haemorrhage [Unknown]
  - Nausea [Unknown]
  - Myalgia [Unknown]
  - Malnutrition [Unknown]
  - Pancreatitis [Unknown]
  - Illness [Unknown]
  - Inflammation [Unknown]

NARRATIVE: CASE EVENT DATE: 201911
